FAERS Safety Report 19877572 (Version 1)
Quarter: 2021Q3

REPORT INFORMATION
  Report Type: Spontaneous
  Country: US (occurrence: US)
  Receive Date: 20210923
  Receipt Date: 20210923
  Transmission Date: 20211014
  Serious: Yes (Other)
  Sender: FDA-Public Use
  Company Number: None

PATIENT
  Sex: Male
  Weight: 126 kg

DRUGS (2)
  1. LAMOTRIGINE. [Suspect]
     Active Substance: LAMOTRIGINE
     Indication: NEURALGIA
     Dosage: ?OTHER FREQUENCY:25MG/WK ? 100MG;?
  2. LAMICTAL XR [Suspect]
     Active Substance: LAMOTRIGINE
     Indication: NEURALGIA
     Route: 048

REACTIONS (13)
  - Sleep paralysis [None]
  - Dyspnoea [None]
  - Fatigue [None]
  - Somnolence [None]
  - Visual impairment [None]
  - Dizziness [None]
  - Alopecia [None]
  - Rash [None]
  - Chest pain [None]
  - Blister [None]
  - Lethargy [None]
  - Eye pain [None]
  - Constipation [None]
